FAERS Safety Report 4702943-8 (Version None)
Quarter: 2005Q2

REPORT INFORMATION
  Report Type: 
  Country: None (occurrence: None)
  Receive Date: 20050629
  Receipt Date: 20050623
  Transmission Date: 20051028
  Serious: Yes (Other)
  Sender: FDA-Public Use
  Company Number: CA-JNJFOC-20050404715

PATIENT
  Sex: Female

DRUGS (7)
  1. RISPERDAL [Suspect]
     Route: 065
  2. RISPERDAL [Suspect]
     Route: 065
  3. PAXIL [Concomitant]
  4. PAXIL [Concomitant]
     Indication: OBSESSIVE-COMPULSIVE DISORDER
  5. PROZAC [Concomitant]
  6. ZYPREXA [Concomitant]
  7. EFFEXOR [Concomitant]

REACTIONS (1)
  - STATUS EPILEPTICUS [None]
